FAERS Safety Report 17445270 (Version 1)
Quarter: 2020Q1

REPORT INFORMATION
  Report Type: Spontaneous
  Country: US (occurrence: US)
  Receive Date: 20200221
  Receipt Date: 20200221
  Transmission Date: 20200409
  Serious: No
  Sender: FDA-Public Use
  Company Number: US-PFIZER INC-2020078352

PATIENT
  Age: 41 Year
  Sex: Female

DRUGS (1)
  1. IBRANCE [Suspect]
     Active Substance: PALBOCICLIB
     Indication: OESTROGEN RECEPTOR POSITIVE BREAST CANCER
     Dosage: 100 MG, CYCLIC (DAILY FOR 21 DAYS THEN 1 WEEK OFF)
     Route: 048

REACTIONS (1)
  - Infection [Recovered/Resolved]
